FAERS Safety Report 26099170 (Version 1)
Quarter: 2025Q4

REPORT INFORMATION
  Report Type: Report from Study
  Country: EU (occurrence: EU)
  Receive Date: 20251128
  Receipt Date: 20251128
  Transmission Date: 20260117
  Serious: Yes (Other)
  Sender: AUROBINDO
  Company Number: EU-ROCHE-2714835

PATIENT
  Age: 10 Year
  Sex: Male
  Weight: 37 kg

DRUGS (12)
  1. PREDNISONE [Suspect]
     Active Substance: PREDNISONE
     Indication: Nephrotic syndrome
     Dosage: 20 MILLIGRAM, ONCE A DAY
  2. PREDNISONE [Suspect]
     Active Substance: PREDNISONE
     Dosage: 60 MILLIGRAM/SQ. METER, EVERY OTHER DAY
  3. PREDNISONE [Suspect]
     Active Substance: PREDNISONE
     Dosage: UNK UNK, EVERY OTHER DAY
  4. PREDNISONE [Suspect]
     Active Substance: PREDNISONE
     Dosage: 120 MILLIGRAM/SQ. METER
  5. DARATUMUMAB [Suspect]
     Active Substance: DARATUMUMAB
     Indication: Nephrotic syndrome
     Dosage: 680 MILLIGRAM
     Route: 065
  6. OBINUTUZUMAB [Suspect]
     Active Substance: OBINUTUZUMAB
     Indication: Nephrotic syndrome
     Dosage: 700 MILLIGRAM
  7. METHYLPREDNISOLONE [Suspect]
     Active Substance: METHYLPREDNISOLONE
     Indication: Nephrotic syndrome
     Dosage: 1 MILLIGRAM/KILOGRAM
     Route: 065
  8. RITUXIMAB [Suspect]
     Active Substance: RITUXIMAB
     Indication: Nephrotic syndrome
     Dosage: 375 MILLIGRAM/SQ. METER, EVERY OTHER DAY
  9. TACROLIMUS [Suspect]
     Active Substance: TACROLIMUS
     Indication: Nephrotic syndrome
     Dosage: UNK
  10. Acetaminophenadd [Concomitant]
     Indication: Product used for unknown indication
     Dosage: 15 MILLIGRAM/KILOGRAM
     Route: 065
  11. DEXCHLORPHENIRAMINE [Concomitant]
     Active Substance: DEXCHLORPHENIRAMINE
     Indication: Product used for unknown indication
     Dosage: UNK
     Route: 065
  12. Sulfamethoxazolead [Concomitant]
     Indication: Product used for unknown indication
     Dosage: 800 MILLIGRAM , WEEK
     Route: 065

REACTIONS (4)
  - Hypogammaglobulinaemia [Unknown]
  - Blood immunoglobulin G decreased [Unknown]
  - Vomiting [Unknown]
  - Off label use [Recovered/Resolved]
